FAERS Safety Report 8536487-2 (Version None)
Quarter: 2012Q3

REPORT INFORMATION
  Report Type: 
  Country: None (occurrence: None)
  Receive Date: 20120725
  Receipt Date: 20120720
  Transmission Date: 20120928
  Serious: Yes (Hospitalization, Other)
  Sender: FDA-Public Use
  Company Number: PHHY2012FR058080

PATIENT
  Sex: Female
  Weight: 59 kg

DRUGS (6)
  1. FLUTICASONE PROPIONATE/SALMETEROL [Concomitant]
  2. SPIRIVA [Concomitant]
  3. ZOLEDRONOC ACID [Suspect]
     Indication: OSTEOPOROSIS
     Route: 042
     Dates: start: 20110802
  4. ISOPTIN [Concomitant]
     Dosage: 1 DF, DAILY
     Route: 048
  5. AUGMENTIN '500' [Suspect]
     Indication: RESPIRATORY DISORDER
  6. VENTOLIN [Concomitant]

REACTIONS (14)
  - SENSATION OF HEAVINESS [None]
  - ABDOMINAL PAIN [None]
  - GENERAL PHYSICAL HEALTH DETERIORATION [None]
  - ENTEROCOLITIS INFECTIOUS [None]
  - CHRONIC OBSTRUCTIVE PULMONARY DISEASE [None]
  - ACUTE RESPIRATORY FAILURE [None]
  - PYREXIA [None]
  - RESPIRATORY FAILURE [None]
  - COLITIS [None]
  - WEIGHT DECREASED [None]
  - CLOSTRIDIUM DIFFICILE COLITIS [None]
  - RECTAL HAEMORRHAGE [None]
  - RALES [None]
  - DIVERTICULITIS [None]
